FAERS Safety Report 10940427 (Version 2)
Quarter: 2015Q2

REPORT INFORMATION
  Report Type: Spontaneous
  Country: US (occurrence: US)
  Receive Date: 20150322
  Receipt Date: 20150524
  Transmission Date: 20150821
  Serious: Yes (Other)
  Sender: FDA-Public Use
  Company Number: US-JNJFOC-20140607147

PATIENT
  Age: 57 Year
  Sex: Male

DRUGS (2)
  1. REOPRO [Suspect]
     Active Substance: ABCIXIMAB
     Indication: ACUTE MYOCARDIAL INFARCTION
     Dosage: 5 ML,?? ONLY DURING CATH PROCEDURE
     Route: 042
     Dates: start: 20140603, end: 20140603
  2. REOPRO [Suspect]
     Active Substance: ABCIXIMAB
     Indication: CATHETER PLACEMENT
     Dosage: 5 ML,?? ONLY DURING CATH PROCEDURE
     Route: 042
     Dates: start: 20140603, end: 20140603

REACTIONS (1)
  - Procedural haemorrhage [Recovered/Resolved]

NARRATIVE: CASE EVENT DATE: 20140603
